FAERS Safety Report 6998710-5 (Version None)
Quarter: 2010Q3

REPORT INFORMATION
  Report Type: 
  Country: None (occurrence: None)
  Receive Date: 20100920
  Receipt Date: 20100119
  Transmission Date: 20110219
  Serious: Yes (Other)
  Sender: FDA-Public Use
  Company Number: US-ASTRAZENECA-2009UW20447

PATIENT
  Sex: Female
  Weight: 88 kg

DRUGS (8)
  1. SEROQUEL [Suspect]
     Indication: SCHIZOAFFECTIVE DISORDER
     Route: 048
     Dates: start: 20010101, end: 20060101
  2. HALDOL [Concomitant]
     Dates: start: 19970101, end: 20000101
  3. GEODON [Concomitant]
     Dates: start: 20080101
  4. ZYPREXA/SYMBYAX [Concomitant]
     Dates: start: 19980101, end: 19990101
  5. ZOLOFT [Concomitant]
     Dates: start: 19890101
  6. PAXIL CR [Concomitant]
     Dosage: DAILY
     Dates: start: 20040101, end: 20060101
  7. COGENTIN [Concomitant]
     Dates: start: 20010101
  8. TRAZODONE HCL [Concomitant]
     Dates: start: 19890101

REACTIONS (3)
  - TARDIVE DYSKINESIA [None]
  - TYPE 2 DIABETES MELLITUS [None]
  - WEIGHT INCREASED [None]
